FAERS Safety Report 6692003-1 (Version None)
Quarter: 2010Q2

REPORT INFORMATION
  Report Type: 
  Country: None (occurrence: None)
  Receive Date: 20100415
  Receipt Date: 20090715
  Transmission Date: 20101027
  Serious: No
  Sender: FDA-Public Use
  Company Number: 2009-00446

PATIENT
  Age: 59 Year
  Sex: Male
  Weight: 79.3795 kg

DRUGS (4)
  1. ZICAM COLD REMEDY NASAL GEL [Suspect]
     Dosage: YEARS AGO - SPRING 2008
     Dates: start: 20080101
  2. DIOVAN [Concomitant]
  3. VERAPAMIL [Concomitant]
  4. ACHIPHEX [Concomitant]

REACTIONS (1)
  - ANOSMIA [None]
